FAERS Safety Report 6502899-1 (Version None)
Quarter: 2009Q4

REPORT INFORMATION
  Report Type: 
  Country: None (occurrence: None)
  Receive Date: 20091217
  Receipt Date: 20091214
  Transmission Date: 20100525
  Serious: Yes (Hospitalization)
  Sender: FDA-Public Use
  Company Number: FR-SANOFI-AVENTIS-2009SA008684

PATIENT
  Age: 76 Year
  Sex: Female

DRUGS (19)
  1. RIFADIN [Suspect]
     Route: 042
     Dates: start: 20090921, end: 20091013
  2. VANCOMYCIN [Suspect]
     Dates: start: 20090917, end: 20091013
  3. AMIKLIN [Concomitant]
     Route: 042
     Dates: start: 20091002, end: 20091005
  4. IMIPENEM AND CILASTATIN SODIUM [Concomitant]
     Route: 042
     Dates: start: 20091002, end: 20091005
  5. CEFTRIAXONE [Concomitant]
     Dates: start: 20090929, end: 20091002
  6. CIFLOX [Concomitant]
     Route: 042
     Dates: start: 20091005, end: 20091014
  7. ALLOPURINOL [Concomitant]
     Indication: DRUG USE FOR UNKNOWN INDICATION
     Route: 048
  8. ARIXTRA [Concomitant]
     Indication: DRUG USE FOR UNKNOWN INDICATION
  9. FLIXOTIDE ^GLAXO^ [Concomitant]
     Indication: DRUG USE FOR UNKNOWN INDICATION
  10. TIOTROPIUM BROMIDE [Concomitant]
     Indication: DRUG USE FOR UNKNOWN INDICATION
  11. TRINITRINE [Concomitant]
     Indication: DRUG USE FOR UNKNOWN INDICATION
  12. ACTISKENAN [Concomitant]
     Indication: DRUG USE FOR UNKNOWN INDICATION
  13. LASILIX [Concomitant]
     Indication: DRUG USE FOR UNKNOWN INDICATION
  14. HEMIGOXINE NATIVELLE [Concomitant]
     Indication: DRUG USE FOR UNKNOWN INDICATION
  15. ATARAX [Concomitant]
     Indication: DRUG USE FOR UNKNOWN INDICATION
  16. LEVOTHYROXINE SODIUM [Concomitant]
     Indication: DRUG USE FOR UNKNOWN INDICATION
  17. PARACETAMOL [Concomitant]
     Indication: DRUG USE FOR UNKNOWN INDICATION
  18. TIORFAN [Concomitant]
     Indication: DRUG USE FOR UNKNOWN INDICATION
  19. XYZAL [Concomitant]
     Indication: DRUG USE FOR UNKNOWN INDICATION

REACTIONS (6)
  - C-REACTIVE PROTEIN INCREASED [None]
  - INFLAMMATION [None]
  - LEUKOCYTOSIS [None]
  - PYREXIA [None]
  - RASH MACULO-PAPULAR [None]
  - TRANSAMINASES INCREASED [None]
